FAERS Safety Report 8526838 (Version 2)
Quarter: 2012Q4

REPORT INFORMATION
  Report Type: 
  Country: ES (occurrence: ES)
  Receive Date: 20120423
  Receipt Date: 20121030
  Transmission Date: 20130627
  Serious: Yes (Death)
  Sender: FDA-Public Use
  Company Number: ES-ELI_LILLY_AND_COMPANY-ES201204006412

PATIENT
  Sex: Male

DRUGS (2)
  1. HUMALOG 50% LISPRO, 50% NPL [Suspect]
     Indication: TYPE 2 DIABETES MELLITUS
     Dosage: 15 u, each morning
  2. HUMALOG 50% LISPRO, 50% NPL [Suspect]
     Dosage: 30 u, other

REACTIONS (1)
  - Intestinal obstruction [Fatal]
